FAERS Safety Report 10869603 (Version 1)
Quarter: 2015Q1

REPORT INFORMATION
  Report Type: Spontaneous
  Country: US (occurrence: US)
  Receive Date: 20150226
  Receipt Date: 20150226
  Transmission Date: 20150721
  Serious: Yes (Death, Hospitalization, Disabling)
  Sender: FDA-Public Use
  Company Number: US-UNITED THERAPEUTICS-UNT-2014-011461

PATIENT
  Age: 70 Year
  Sex: Male
  Weight: 122.45 kg

DRUGS (3)
  1. ADCIRCA [Concomitant]
     Active Substance: TADALAFIL
     Indication: PRODUCT USED FOR UNKNOWN INDICATION
  2. TYVASO [Suspect]
     Active Substance: TREPROSTINIL
     Indication: PULMONARY ARTERIAL HYPERTENSION
     Dosage: 96-108 ?G, QID
     Dates: start: 20131008, end: 20141112
  3. TYVASO [Suspect]
     Active Substance: TREPROSTINIL
     Dosage: 54 ?G, QID
     Dates: start: 20140717, end: 20141211

REACTIONS (10)
  - Atrioventricular block [Recovered/Resolved]
  - Facial bones fracture [Recovered/Resolved]
  - Pulseless electrical activity [Recovered/Resolved]
  - Coronary artery stenosis [Recovered/Resolved]
  - Syncope [Recovered/Resolved]
  - Jaw fracture [Recovered/Resolved]
  - Myocardial infarction [Recovered/Resolved]
  - Immobile [Recovered/Resolved]
  - Death [Fatal]
  - Rib fracture [Recovered/Resolved]

NARRATIVE: CASE EVENT DATE: 2014
